FAERS Safety Report 8158559-7 (Version None)
Quarter: 2012Q1

REPORT INFORMATION
  Report Type: 
  Country: None (occurrence: None)
  Receive Date: 20120223
  Receipt Date: 20120216
  Transmission Date: 20120608
  Serious: Yes (Hospitalization)
  Sender: FDA-Public Use
  Company Number: KR-JNJFOC-20111111661

PATIENT
  Sex: Male
  Weight: 65.2 kg

DRUGS (9)
  1. ULTRACET [Suspect]
     Indication: PAIN
     Dosage: ONE TABLET TWICE A DAY.
     Route: 048
     Dates: start: 20111027, end: 20111121
  2. ULTRACET [Suspect]
     Dosage: DECREASED DOSE TO HALF (1 TABLET TWICE A DAY)
     Route: 048
  3. SOLETON [Concomitant]
     Indication: PAIN
     Dosage: ONE TABLET ONCE A DAY
     Route: 065
  4. AFLOQUALONE [Concomitant]
     Indication: NERVOUS SYSTEM DISORDER
     Dosage: 2 TABLETS
     Route: 065
  5. MUCOSTA [Concomitant]
     Indication: PEPTIC ULCER
     Dosage: 2 TABLETS
     Route: 065
  6. PARAMACET [Concomitant]
     Indication: PAIN
     Dosage: ONE TABLET TWICE A DAY
     Route: 065
     Dates: end: 20111026
  7. LYRICA [Concomitant]
     Indication: ANALGESIC THERAPY
     Dosage: 1 CAPSULE ONCE A DAY
     Route: 066
  8. LIDOCAINE [Concomitant]
     Indication: LOCAL ANAESTHESIA
     Dosage: 1 VIAL
     Route: 065
     Dates: start: 20111027, end: 20111027
  9. TRIAMCINOLONE DIACETATE [Concomitant]
     Indication: HORMONE LEVEL ABNORMAL
     Dosage: 1 VIAL
     Route: 065
     Dates: start: 20111027, end: 20111027

REACTIONS (2)
  - FALL [None]
  - DIZZINESS [None]
